FAERS Safety Report 8541579-8 (Version None)
Quarter: 2012Q3

REPORT INFORMATION
  Report Type: 
  Country: None (occurrence: None)
  Receive Date: 20120726
  Receipt Date: 20120721
  Transmission Date: 20120928
  Serious: Yes (Other)
  Sender: FDA-Public Use
  Company Number: DE-ROCHE-1061577

PATIENT
  Age: 75 Year
  Sex: Female
  Weight: 79 kg

DRUGS (8)
  1. LEFLUNOMIDE [Concomitant]
  2. ACETAMINOPHEN [Concomitant]
  3. ACTEMRA [Suspect]
     Indication: RHEUMATOID ARTHRITIS
     Route: 042
     Dates: start: 20120119
  4. DIPYRONE TAB [Concomitant]
  5. ACTEMRA [Suspect]
     Route: 042
     Dates: start: 20120216
  6. PANTOPRAZOL NATRIUM [Concomitant]
  7. DEKRISTOL [Concomitant]
     Dosage: 20000 E
  8. CALCIUM [Concomitant]

REACTIONS (4)
  - POLYNEUROPATHY [None]
  - EYELIDS PRURITUS [None]
  - PAIN IN EXTREMITY [None]
  - ERYTHEMA OF EYELID [None]
